FAERS Safety Report 4324628-2 (Version None)
Quarter: 2004Q1

REPORT INFORMATION
  Report Type: 
  Country: None (occurrence: None)
  Receive Date: 20040323
  Receipt Date: 20040311
  Transmission Date: 20041129
  Serious: Yes (Hospitalization, Other)
  Sender: FDA-Public Use
  Company Number: HQWYE791402FEB04

PATIENT
  Age: 84 Year
  Sex: Male

DRUGS (1)
  1. INDERAL [Suspect]
     Indication: HYPERTENSION
     Dosage: 20 MG 1X PER 1 DAY, ORAL
     Route: 048
     Dates: start: 20030101, end: 20031101

REACTIONS (1)
  - ATRIOVENTRICULAR BLOCK SECOND DEGREE [None]
